FAERS Safety Report 25314423 (Version 2)
Quarter: 2025Q3

REPORT INFORMATION
  Report Type: Spontaneous
  Country: US (occurrence: US)
  Receive Date: 20250514
  Receipt Date: 20250813
  Transmission Date: 20251021
  Serious: Yes (Hospitalization, Other)
  Sender: ALEMBIC
  Company Number: US-ALEMBIC PHARMACUETICALS LIMITED-2025SCAL000453

PATIENT

DRUGS (6)
  1. METOPROLOL TARTRATE [Suspect]
     Active Substance: METOPROLOL TARTRATE
     Indication: Ventricular tachycardia
     Route: 065
  2. METOPROLOL TARTRATE [Suspect]
     Active Substance: METOPROLOL TARTRATE
     Indication: Ventricular extrasystoles
     Route: 065
  3. PHENOXYBENZAMINE HYDROCHLORIDE [Concomitant]
     Active Substance: PHENOXYBENZAMINE HYDROCHLORIDE
     Indication: Ventricular tachycardia
     Route: 065
  4. PHENOXYBENZAMINE HYDROCHLORIDE [Concomitant]
     Active Substance: PHENOXYBENZAMINE HYDROCHLORIDE
     Indication: Ventricular extrasystoles
  5. ENALAPRIL [Concomitant]
     Active Substance: ENALAPRIL
     Indication: Ventricular extrasystoles
     Route: 065
  6. ENALAPRIL [Concomitant]
     Active Substance: ENALAPRIL
     Indication: Ventricular tachycardia

REACTIONS (24)
  - Adrenergic syndrome [Recovered/Resolved]
  - Heart rate increased [Recovering/Resolving]
  - Supraventricular tachycardia [Recovering/Resolving]
  - Blood pressure systolic increased [Recovering/Resolving]
  - Blood pressure diastolic increased [Recovering/Resolving]
  - Somnolence [Recovering/Resolving]
  - Nausea [Recovering/Resolving]
  - Mental impairment [Recovering/Resolving]
  - Hypoperfusion [Recovering/Resolving]
  - Depressed level of consciousness [Recovering/Resolving]
  - Hypopnoea [Recovering/Resolving]
  - Blood pressure systolic decreased [Recovering/Resolving]
  - Oxygen saturation decreased [Recovered/Resolved]
  - Atrial tachycardia [Recovering/Resolving]
  - Blood pH decreased [Recovering/Resolving]
  - Blood lactic acid increased [Recovering/Resolving]
  - Cardiogenic shock [Recovering/Resolving]
  - Right ventricular dysfunction [Recovering/Resolving]
  - Tricuspid valve incompetence [Recovering/Resolving]
  - Lactic acidosis [Recovered/Resolved]
  - Drug withdrawal syndrome [Recovered/Resolved]
  - Palpitations [Recovering/Resolving]
  - Abdominal pain [Recovering/Resolving]
  - Vomiting [Recovering/Resolving]
